FAERS Safety Report 9022068 (Version 2)
Quarter: 2013Q2

REPORT INFORMATION
  Report Type: Spontaneous
  Country: CA (occurrence: CA)
  Receive Date: 20130118
  Receipt Date: 20130501
  Transmission Date: 20140414
  Serious: Yes (Hospitalization)
  Sender: FDA-Public Use
  Company Number: CA-GLAXOSMITHKLINE-A1004810A

PATIENT
  Age: 53 Year
  Sex: Female

DRUGS (2)
  1. VOTRIENT [Suspect]
     Indication: RENAL CANCER METASTATIC
     Dosage: 800MG PER DAY
     Route: 048
     Dates: start: 20110127
  2. BIAXIN [Concomitant]

REACTIONS (4)
  - Pain [Not Recovered/Not Resolved]
  - Malignant neoplasm progression [Unknown]
  - Adverse event [Unknown]
  - Dyspnoea [Not Recovered/Not Resolved]
